FAERS Safety Report 23193992 (Version 2)
Quarter: 2023Q4

REPORT INFORMATION
  Report Type: Spontaneous
  Country: BR (occurrence: BR)
  Receive Date: 20231117
  Receipt Date: 20231128
  Transmission Date: 20240110
  Serious: Yes (Hospitalization, Other)
  Sender: FDA-Public Use
  Company Number: BR-BoehringerIngelheim-2023-BI-272693

PATIENT
  Age: 65 Year
  Sex: Female
  Weight: 62 kg

DRUGS (13)
  1. ATROVENT [Suspect]
     Active Substance: IPRATROPIUM BROMIDE
     Indication: Emphysema
     Dosage: USES 20 OR 30 DROPS EVERY NIGHT??FORM OF ADMIN.: DROPS
  2. ATROVENT [Suspect]
     Active Substance: IPRATROPIUM BROMIDE
     Indication: Bronchitis
  3. IPRATROPIUM BROMIDE [Suspect]
     Active Substance: IPRATROPIUM BROMIDE\IPRATROPIUM BROMIDE ANHYDROUS
     Indication: Emphysema
     Dosage: ONE PUFF IN THE MORNING BY ORAL ROUTE
     Route: 048
  4. IPRATROPIUM BROMIDE [Suspect]
     Active Substance: IPRATROPIUM BROMIDE\IPRATROPIUM BROMIDE ANHYDROUS
     Indication: Bronchitis
  5. BEROTEC [Suspect]
     Active Substance: FENOTEROL HYDROBROMIDE
     Indication: Emphysema
     Dosage: ONE PUFF IN THE MORNING BY ORAL ROUTE??FORM. OF ADMIN.: AEROSOL
     Route: 048
  6. BEROTEC [Suspect]
     Active Substance: FENOTEROL HYDROBROMIDE
     Indication: Bronchitis
     Dosage: FORM OF ADMIN.: DROPS
  7. BEROTEC [Suspect]
     Active Substance: FENOTEROL HYDROBROMIDE
     Dosage: BEROTEC AEROSOL
  8. CIPROFLOXACIN HYDROCHLORIDE [Suspect]
     Active Substance: CIPROFLOXACIN HYDROCHLORIDE
     Indication: Urinary tract infection
  9. ALENIA [Concomitant]
     Indication: Product used for unknown indication
  10. BECLOMETHASONE DIPROPIONATE [Concomitant]
     Active Substance: BECLOMETHASONE DIPROPIONATE
     Indication: Product used for unknown indication
  11. ALBUTEROL [Concomitant]
     Active Substance: ALBUTEROL
     Indication: Product used for unknown indication
  12. MACRODANTIN [Concomitant]
     Active Substance: NITROFURANTOIN
     Indication: Bladder pain
     Dosage: 2 TABLETS PER DAY WHEN SHE IS FINE
     Route: 048
  13. MACRODANTIN [Concomitant]
     Active Substance: NITROFURANTOIN
     Dosage: USES 3 TIMES A DAY WHEN SHE HAS PAIN
     Route: 048

REACTIONS (22)
  - Pain [Unknown]
  - Asthmatic crisis [Unknown]
  - Cholelithiasis [Unknown]
  - Pneumonia [Unknown]
  - Urinary tract infection [Unknown]
  - Discomfort [Unknown]
  - Emotional distress [Unknown]
  - Gastrointestinal disorder [Unknown]
  - Cough [Unknown]
  - Gait disturbance [Unknown]
  - Speech disorder [Unknown]
  - Dyspnoea exertional [Unknown]
  - Pneumonia [Unknown]
  - Cystocele [Unknown]
  - Hypotension [Unknown]
  - Emotional distress [Unknown]
  - Speech disorder [Unknown]
  - Dyspnoea [Unknown]
  - Temperature intolerance [Unknown]
  - Nervousness [Unknown]
  - Crying [Unknown]
  - Bronchitis [Unknown]

NARRATIVE: CASE EVENT DATE: 20230101
